FAERS Safety Report 18236145 (Version 4)
Quarter: 2021Q1

REPORT INFORMATION
  Report Type: Spontaneous
  Country: DE (occurrence: DE)
  Receive Date: 20200906
  Receipt Date: 20210106
  Transmission Date: 20210419
  Serious: Yes (Hospitalization, Other)
  Sender: FDA-Public Use
  Company Number: DE-AMGEN-DEUSP2020140075

PATIENT
  Age: 68 Year
  Sex: Male
  Weight: 91 kg

DRUGS (10)
  1. PACLITAXEL. [Suspect]
     Active Substance: PACLITAXEL
     Indication: NON-SMALL CELL LUNG CANCER
     Dosage: 380 MILLIGRAM/SQ. METER
     Route: 042
     Dates: start: 20200727
  2. CARBOPLATIN. [Suspect]
     Active Substance: CARBOPLATIN
     Indication: NON-SMALL CELL LUNG CANCER
     Dosage: 850 MILLIGRAM PER MILLILITRE
     Route: 042
     Dates: start: 20200727
  3. DEXAMETHASON [DEXAMETHASONE] [Concomitant]
     Active Substance: DEXAMETHASONE
     Dosage: 2 MILLIGRAM
     Route: 048
     Dates: start: 20200720
  4. METOPROLOL. [Concomitant]
     Active Substance: METOPROLOL
     Indication: HYPERTENSION
     Dosage: 95 MILLIGRAM
     Route: 048
  5. ETORICOXIB. [Concomitant]
     Active Substance: ETORICOXIB
     Indication: BACK PAIN
     Dosage: 90 MILLIGRAM, DAILY
     Route: 048
  6. INNOHEP [Concomitant]
     Active Substance: TINZAPARIN SODIUM
     Indication: ARRHYTHMIA
     Dosage: 2000 INTERNATIONAL UNIT
     Route: 058
     Dates: start: 20200720
  7. SEVREDOL [Concomitant]
     Active Substance: MORPHINE
     Dosage: 20 MILLIGRAM, QD
     Route: 048
     Dates: start: 2020
  8. BEVACIZUMAB. [Suspect]
     Active Substance: BEVACIZUMAB
     Indication: NON-SMALL CELL LUNG CANCER
     Dosage: 1365 MILLIGRAM/KILOGRAM
     Route: 042
     Dates: start: 20200727
  9. ATEZOLIZUMAB. [Suspect]
     Active Substance: ATEZOLIZUMAB
     Indication: NON-SMALL CELL LUNG CANCER
     Dosage: 1200 MILLIGRAM
     Route: 041
     Dates: start: 20200727
  10. MORPHINE SULFATE. [Concomitant]
     Active Substance: MORPHINE SULFATE
     Dosage: 20 MILLIGRAM
     Route: 048
     Dates: start: 2020

REACTIONS (9)
  - Diverticulitis [Recovered/Resolved]
  - Hypokalaemia [Recovered/Resolved]
  - Impaired healing [Unknown]
  - Gastrointestinal ulcer perforation [Recovered/Resolved]
  - Decreased appetite [Recovered/Resolved]
  - General physical health deterioration [Recovered/Resolved]
  - Nausea [Recovered/Resolved]
  - Pancytopenia [Not Recovered/Not Resolved]
  - Vomiting [Recovered/Resolved]

NARRATIVE: CASE EVENT DATE: 20200730
